FAERS Safety Report 21219091 (Version 1)
Quarter: 2022Q3

REPORT INFORMATION
  Report Type: Spontaneous
  Country: CN (occurrence: CN)
  Receive Date: 20220816
  Receipt Date: 20220816
  Transmission Date: 20221027
  Serious: Yes (Hospitalization, Other)
  Sender: FDA-Public Use
  Company Number: CN-AMGEN-CHNSP2022137120

PATIENT

DRUGS (5)
  1. EPOETIN ALFA [Suspect]
     Active Substance: ERYTHROPOIETIN
     Indication: Nephrogenic anaemia
     Dosage: 30000 INTERNATIONAL UNIT
     Route: 058
  2. ROXADUSTAT [Concomitant]
     Active Substance: ROXADUSTAT
     Dosage: 50 MILLIGRAM
     Route: 048
  3. ROXADUSTAT [Concomitant]
     Active Substance: ROXADUSTAT
     Dosage: 70 MILLIGRAM
     Route: 048
  4. ROXADUSTAT [Concomitant]
     Active Substance: ROXADUSTAT
     Dosage: 100 MILLIGRAM
     Route: 048
  5. IRON [Concomitant]
     Active Substance: IRON
     Dosage: UNK
     Route: 048

REACTIONS (5)
  - Diarrhoea [Unknown]
  - Thrombosis [Unknown]
  - Hypersensitivity [Unknown]
  - Nausea [Unknown]
  - Vomiting [Unknown]
